FAERS Safety Report 11862589 (Version 1)
Quarter: 2015Q4

REPORT INFORMATION
  Report Type: Spontaneous
  Country: US (occurrence: US)
  Receive Date: 20151223
  Receipt Date: 20151223
  Transmission Date: 20160305
  Serious: Yes (Hospitalization, Other)
  Sender: FDA-Public Use
  Company Number: US-ORCHID HEALTHCARE-1045807

PATIENT
  Age: 5 Year
  Sex: Male

DRUGS (1)
  1. CEPHALEXIN. [Suspect]
     Active Substance: CEPHALEXIN
     Route: 065

REACTIONS (5)
  - Muscular weakness [Unknown]
  - Arthralgia [Unknown]
  - Irritability [Unknown]
  - Seizure [Unknown]
  - Confusional state [Unknown]

NARRATIVE: CASE EVENT DATE: 20151201
